FAERS Safety Report 4526887-X (Version None)
Quarter: 2004Q4

REPORT INFORMATION
  Report Type: 
  Country: None (occurrence: None)
  Receive Date: 20041213
  Receipt Date: 20041206
  Transmission Date: 20050328
  Serious: Yes (Death)
  Sender: FDA-Public Use
  Company Number: 2004AP06179

PATIENT
  Age: 83 Year
  Sex: Male

DRUGS (1)
  1. MEROPENEM [Suspect]

REACTIONS (1)
  - HEPATIC FUNCTION ABNORMAL [None]
